FAERS Safety Report 24367724 (Version 4)
Quarter: 2024Q4

REPORT INFORMATION
  Report Type: Spontaneous
  Country: JP (occurrence: JP)
  Receive Date: 20240926
  Receipt Date: 20241210
  Transmission Date: 20250115
  Serious: Yes (Hospitalization, Other)
  Sender: PFIZER
  Company Number: JP-MLMSERVICE-20240912-PI190515-00077-1

PATIENT
  Age: 68 Year
  Sex: Female

DRUGS (3)
  1. BEVACIZUMAB [Suspect]
     Active Substance: BEVACIZUMAB
     Indication: Adenocarcinoma of appendix
     Dosage: 3-WEEKLY BEVACIZUMAB
  2. OXALIPLATIN [Suspect]
     Active Substance: OXALIPLATIN
     Indication: Adenocarcinoma of appendix
     Dosage: 3-WEEKLY 8 COURSES OF XELOX
  3. CAPECITABINE [Suspect]
     Active Substance: CAPECITABINE
     Indication: Adenocarcinoma of appendix
     Dosage: 3-WEEKLY REGIMEN XELOX

REACTIONS (5)
  - Brain abscess [Recovering/Resolving]
  - Parvimonas micra infection [Recovered/Resolved]
  - Fusobacterium infection [Recovered/Resolved]
  - Streptococcal infection [Recovered/Resolved]
  - Off label use [Unknown]
